FAERS Safety Report 8494374-2 (Version None)
Quarter: 2012Q2

REPORT INFORMATION
  Report Type: 
  Country: None (occurrence: None)
  Receive Date: 20120628
  Receipt Date: 20120618
  Transmission Date: 20120825
  Serious: Yes (Other)
  Sender: FDA-Public Use
  Company Number: 2012P1042685

PATIENT
  Age: 44 Year
  Sex: Female

DRUGS (1)
  1. HYDROXYCHLOROQUINE SULFATE [Suspect]
     Dosage: 400 MG;BID;PO
     Route: 048

REACTIONS (1)
  - VISUAL ACUITY REDUCED [None]
